FAERS Safety Report 9046362 (Version 1)
Quarter: 2013Q1

REPORT INFORMATION
  Report Type: Spontaneous
  Country: CO (occurrence: CO)
  Receive Date: 20130201
  Receipt Date: 20130201
  Transmission Date: 20140127
  Serious: Yes (Other)
  Sender: FDA-Public Use
  Company Number: CO-JNJFOC-20130112512

PATIENT
  Age: 35 Year
  Sex: Female

DRUGS (5)
  1. REMICADE [Suspect]
     Indication: HIDRADENITIS
     Route: 042
     Dates: start: 20110603
  2. REMICADE [Suspect]
     Indication: HIDRADENITIS
     Route: 042
     Dates: start: 20130116, end: 20130116
  3. HYDROCORTISONE [Concomitant]
     Indication: PREMEDICATION
     Route: 065
     Dates: start: 20130116
  4. TRIMETHOPRIM [Concomitant]
     Route: 048
  5. GINKGO BILOBA [Concomitant]
     Route: 048

REACTIONS (4)
  - Respiratory distress [Unknown]
  - Hypertension [Unknown]
  - Chest pain [Unknown]
  - Cough [Unknown]
